FAERS Safety Report 9205807 (Version 1)
Quarter: 2013Q2

REPORT INFORMATION
  Report Type: Spontaneous
  Country: US (occurrence: None)
  Receive Date: 20130401
  Receipt Date: 20130401
  Transmission Date: 20140414
  Serious: Yes (Other)
  Sender: FDA-Public Use
  Company Number: 1303-393

PATIENT
  Age: 87 Year
  Sex: Male

DRUGS (2)
  1. EYLEA (AFLIBERCEPT) (INJECTION) (AFLIBERCEPT) [Suspect]
     Dosage: INTRAVITREAL
  2. LUCENTIS (RANIBIZUMAB) [Concomitant]

REACTIONS (2)
  - Non-infectious endophthalmitis [None]
  - Blindness transient [None]
